FAERS Safety Report 9255244 (Version 1)
Quarter: 2013Q2

REPORT INFORMATION
  Report Type: Spontaneous
  Country: IT (occurrence: IT)
  Receive Date: 20130425
  Receipt Date: 20130425
  Transmission Date: 20140414
  Serious: Yes (Other)
  Sender: FDA-Public Use
  Company Number: IT-ASTRAZENECA-2013SE26133

PATIENT
  Age: 29864 Day
  Sex: Female

DRUGS (11)
  1. SEROQUEL [Suspect]
     Indication: HALLUCINATION
     Route: 048
     Dates: start: 20130226, end: 20130306
  2. LEVODOPA+CARBIDOPA [Concomitant]
     Dosage: 30 TABLET, PROLONGED RELEASE, 200 MG+ 50 MG, 1+1+1/DAILY
  3. ALENDRONATE [Concomitant]
     Dosage: 4 TABLET, 70 MG, 1 TABLET, WEEKLY
     Route: 048
  4. FRAXIPARINA [Concomitant]
     Indication: HIP ARTHROPLASTY
     Dosage: 3800 UI UI ANTI-XA/0,4 ML, 1 DF ON UNKNOWN FREQUENCY
     Route: 058
  5. TILDIEM [Concomitant]
     Route: 048
  6. TRIATEC HTC [Concomitant]
     Dosage: 5 MG + 25 MG TABLET, 1 DF ON UNKNOWN FREQUENCY
     Route: 048
  7. TRITTICO [Concomitant]
     Route: 048
  8. DIBASE [Concomitant]
     Dosage: 100.000 UI/ML, ORAL USE AND INTRAMUSCULAR, 1 VIAL, MONTHLY
     Route: 048
  9. DIBASE [Concomitant]
     Dosage: 100.000 UI/ML,  ORAL USE AND INTRAMUSCULAR, 1 VIAL, MONTHLY
     Route: 030
  10. CRESTOR [Concomitant]
     Route: 048
  11. METFORAL [Concomitant]
     Route: 048

REACTIONS (2)
  - Hypotension [Recovered/Resolved]
  - Presyncope [Recovered/Resolved]
